FAERS Safety Report 12202532 (Version 9)
Quarter: 2018Q1

REPORT INFORMATION
  Report Type: Spontaneous
  Country: US (occurrence: US)
  Receive Date: 20160323
  Receipt Date: 20180205
  Transmission Date: 20180508
  Serious: Yes (Other)
  Sender: FDA-Public Use
  Company Number: PHEH2016US006798

PATIENT
  Age: 26 Year
  Sex: Female
  Weight: 99.79 kg

DRUGS (2)
  1. ZOFRAN [Suspect]
     Active Substance: ONDANSETRON HYDROCHLORIDE
     Indication: VOMITING IN PREGNANCY
     Dosage: 4 MG, QD
     Route: 065
     Dates: start: 20061117, end: 20061117
  2. ZOFRAN [Suspect]
     Active Substance: ONDANSETRON HYDROCHLORIDE
     Indication: MIGRAINE

REACTIONS (18)
  - Premature delivery [Unknown]
  - Depression [Unknown]
  - Product use in unapproved indication [Unknown]
  - Subcutaneous abscess [Unknown]
  - Pre-eclampsia [Unknown]
  - Sleep apnoea syndrome [Unknown]
  - Anxiety [Unknown]
  - Cellulitis [Unknown]
  - Pain [Unknown]
  - Panic attack [Unknown]
  - Suicidal ideation [Unknown]
  - Gestational hypertension [Unknown]
  - Lymphocytic infiltration [Unknown]
  - Ligament sprain [Unknown]
  - Otitis externa [Unknown]
  - Exostosis [Unknown]
  - Maternal exposure during pregnancy [Unknown]
  - Emotional distress [Unknown]

NARRATIVE: CASE EVENT DATE: 20070513
